FAERS Safety Report 10767710 (Version 4)
Quarter: 2015Q2

REPORT INFORMATION
  Report Type: Spontaneous
  Country: US (occurrence: US)
  Receive Date: 20150205
  Receipt Date: 20150406
  Transmission Date: 20150821
  Serious: Yes (Disabling, Other)
  Sender: FDA-Public Use
  Company Number: US-ABBVIE-15P-163-1341686-00

PATIENT
  Sex: Male

DRUGS (1)
  1. ANDROGEL [Suspect]
     Active Substance: TESTOSTERONE
     Indication: BLOOD TESTOSTERONE DECREASED
     Route: 061

REACTIONS (15)
  - Deep vein thrombosis [Unknown]
  - Deep vein thrombosis [Unknown]
  - Physical disability [Unknown]
  - Retinal vascular occlusion [Unknown]
  - Pain [Unknown]
  - Blindness [Unknown]
  - Deep vein thrombosis [Unknown]
  - Thrombosis [Unknown]
  - Anxiety [Unknown]
  - Thrombosis [Unknown]
  - Impaired work ability [Unknown]
  - Emotional disorder [Unknown]
  - Thrombosis [Unknown]
  - Thrombosis [Unknown]
  - Deep vein thrombosis [Unknown]

NARRATIVE: CASE EVENT DATE: 201302
